FAERS Safety Report 13804836 (Version 1)
Quarter: 2017Q3

REPORT INFORMATION
  Report Type: Spontaneous
  Country: US (occurrence: US)
  Receive Date: 20170728
  Receipt Date: 20170728
  Transmission Date: 20171127
  Serious: No
  Sender: FDA-Public Use
  Company Number: US-PFIZER INC-2017322018

PATIENT
  Age: 65 Year
  Sex: Male
  Weight: 73.48 kg

DRUGS (2)
  1. CHANTIX [Suspect]
     Active Substance: VARENICLINE TARTRATE
     Dosage: 1 MG, UNK
     Route: 048
     Dates: start: 201707, end: 20170723
  2. CHANTIX [Suspect]
     Active Substance: VARENICLINE TARTRATE
     Indication: SMOKING CESSATION THERAPY
     Dosage: 0.5 MG, UNK
     Route: 048
     Dates: start: 20170701, end: 201707

REACTIONS (4)
  - Fear [Unknown]
  - Chromatopsia [Not Recovered/Not Resolved]
  - Malaise [Unknown]
  - Anxiety [Unknown]

NARRATIVE: CASE EVENT DATE: 201707
